FAERS Safety Report 6226889-1 (Version None)
Quarter: 2009Q2

REPORT INFORMATION
  Report Type: 
  Country: None (occurrence: None)
  Receive Date: 20090612
  Receipt Date: 20090610
  Transmission Date: 20091009
  Serious: Yes (Other)
  Sender: FDA-Public Use
  Company Number: FR-ASTRAZENECA-2009CG01020

PATIENT
  Age: 26247 Day
  Sex: Male
  Weight: 76 kg

DRUGS (2)
  1. CRESTOR [Suspect]
     Route: 048
     Dates: start: 20090505
  2. KARDEGIC [Concomitant]

REACTIONS (3)
  - DIZZINESS [None]
  - MUSCLE SPASMS [None]
  - MUSCULAR WEAKNESS [None]
